FAERS Safety Report 11687888 (Version 5)
Quarter: 2016Q1

REPORT INFORMATION
  Report Type: Spontaneous
  Country: GB (occurrence: GB)
  Receive Date: 20151030
  Receipt Date: 20160119
  Transmission Date: 20160525
  Serious: Yes (Other)
  Sender: FDA-Public Use
  Company Number: PHFR2015GB008178

PATIENT
  Age: 51 Year
  Sex: Male
  Weight: 106 kg

DRUGS (5)
  1. SIMVASTATIN. [Concomitant]
     Active Substance: SIMVASTATIN
     Indication: BLOOD CHOLESTEROL INCREASED
     Dosage: 20 MG, QD
     Route: 048
     Dates: start: 20090114
  2. OLMESARTAN [Concomitant]
     Active Substance: OLMESARTAN
     Indication: BLOOD PRESSURE ABNORMAL
     Dosage: 40 MG, QD
     Route: 048
     Dates: start: 20110617
  3. LAMISIL [Suspect]
     Active Substance: TERBINAFINE HYDROCHLORIDE
     Indication: TINEA CRURIS
     Dosage: 250 MG, QD
     Route: 048
     Dates: start: 20150713, end: 20150911
  4. METOPROLOL. [Concomitant]
     Active Substance: METOPROLOL
     Indication: BLOOD PRESSURE ABNORMAL
     Dosage: 200 MG, QD
     Route: 065
     Dates: start: 20071129
  5. METFORMIN W/VILDAGLIPTIN [Concomitant]
     Active Substance: METFORMIN HYDROCHLORIDE\VILDAGLIPTIN
     Indication: DIABETES MELLITUS
     Dosage: 1 DF, QD
     Route: 048
     Dates: start: 20131216

REACTIONS (4)
  - Dysgeusia [Recovered/Resolved]
  - Oral pain [Recovered/Resolved]
  - Weight decreased [Recovered/Resolved]
  - Decreased appetite [Recovered/Resolved]

NARRATIVE: CASE EVENT DATE: 20150911
